FAERS Safety Report 19778514 (Version 3)
Quarter: 2021Q4

REPORT INFORMATION
  Report Type: Report from Study
  Country: CO (occurrence: CO)
  Receive Date: 20210902
  Receipt Date: 20211206
  Transmission Date: 20220303
  Serious: Yes (Other)
  Sender: FDA-Public Use
  Company Number: CO-NOVARTISPH-NVSC2021CO174906

PATIENT
  Sex: Male
  Weight: 130 kg

DRUGS (1)
  1. TASIGNA [Suspect]
     Active Substance: NILOTINIB
     Indication: Chronic myeloid leukaemia
     Dosage: 150 MG, Q12H (START DATE: 10 YESRS AGO)
     Route: 048

REACTIONS (8)
  - Asphyxia [Unknown]
  - COVID-19 [Unknown]
  - Illness [Unknown]
  - Hiccups [Unknown]
  - Chest discomfort [Unknown]
  - Headache [Unknown]
  - Cough [Unknown]
  - Product supply issue [Unknown]
